FAERS Safety Report 16317082 (Version 2)
Quarter: 2019Q3

REPORT INFORMATION
  Report Type: Spontaneous
  Country: US (occurrence: US)
  Receive Date: 20190515
  Receipt Date: 20190703
  Transmission Date: 20191004
  Serious: No
  Sender: FDA-Public Use
  Company Number: US-SA-2019SA132249

PATIENT
  Sex: Male

DRUGS (1)
  1. DUPIXENT [Suspect]
     Active Substance: DUPILUMAB
     Indication: DERMATITIS ATOPIC
     Dosage: 1 MG, QOW
     Route: 058
     Dates: start: 20190407

REACTIONS (3)
  - Device use issue [Unknown]
  - Product dose omission [Unknown]
  - Eczema [Recovering/Resolving]
